FAERS Safety Report 7029704-1 (Version None)
Quarter: 2010Q4

REPORT INFORMATION
  Report Type: 
  Country: None (occurrence: None)
  Receive Date: 20101005
  Receipt Date: 20101005
  Transmission Date: 20110411
  Serious: Yes (Life-Threatening)
  Sender: FDA-Public Use
  Company Number: None

PATIENT
  Age: 53 Year
  Sex: Male
  Weight: 136.8 kg

DRUGS (1)
  1. LEVOFLOXACIN [Suspect]
     Indication: CELLULITIS
     Dosage: 500 MG EVERY DAY PO
     Route: 048
     Dates: start: 20100816, end: 20100825

REACTIONS (1)
  - RENAL FAILURE ACUTE [None]
